FAERS Safety Report 24126973 (Version 4)
Quarter: 2024Q3

REPORT INFORMATION
  Report Type: Report from Study
  Country: US (occurrence: US)
  Receive Date: 20240723
  Receipt Date: 20240805
  Transmission Date: 20241017
  Serious: Yes (Congenital Anomaly, Other)
  Sender: MYLAN
  Company Number: US-MYLANLABS-2024M1067275

PATIENT
  Age: 0 Year
  Sex: Female
  Weight: 0.64 kg

DRUGS (4)
  1. ZIDOVUDINE [Suspect]
     Active Substance: ZIDOVUDINE
     Indication: HIV infection
     Dosage: UNK (2 MG/KG/HR)
     Route: 064
     Dates: start: 20240330, end: 20240330
  2. ZIDOVUDINE [Suspect]
     Active Substance: ZIDOVUDINE
     Dosage: UNK (1 MG/KG/HR)
     Route: 064
     Dates: start: 20240330, end: 20240330
  3. DOLUTEGRAVIR\LAMIVUDINE\TENOFOVIR DISOPROXIL FUMARATE [Suspect]
     Active Substance: DOLUTEGRAVIR\LAMIVUDINE\TENOFOVIR DISOPROXIL FUMARATE
     Indication: HIV infection
     Dosage: UNK
     Route: 064
  4. BICTEGRAVIR\EMTRICITABINE\TENOFOVIR ALAFENAMIDE [Suspect]
     Active Substance: BICTEGRAVIR\EMTRICITABINE\TENOFOVIR ALAFENAMIDE
     Indication: HIV infection
     Dosage: UNK
     Route: 064

REACTIONS (4)
  - Septum pellucidum agenesis [Unknown]
  - Ventricular septal defect [Unknown]
  - Premature baby [Unknown]
  - Foetal exposure during pregnancy [Recovered/Resolved]

NARRATIVE: CASE EVENT DATE: 20240330
